FAERS Safety Report 25449718 (Version 3)
Quarter: 2025Q3

REPORT INFORMATION
  Report Type: Spontaneous
  Country: JP (occurrence: JP)
  Receive Date: 20250618
  Receipt Date: 20250714
  Transmission Date: 20251020
  Serious: Yes (Other)
  Sender: BRISTOL-MYERS SQUIBB COMPANY
  Company Number: JP-TAIHO-2025-006191

PATIENT
  Age: 73 Year
  Sex: Male

DRUGS (2)
  1. ABRAXANE [Suspect]
     Active Substance: PACLITAXEL
     Indication: Adenocarcinoma gastric
     Route: 041
  2. ANTICOAGULANTE ACD [Concomitant]
     Indication: Atrial fibrillation
     Route: 048

REACTIONS (1)
  - Haematotoxicity [Unknown]
